FAERS Safety Report 8091560-0 (Version None)
Quarter: 2012Q1

REPORT INFORMATION
  Report Type: 
  Country: None (occurrence: None)
  Receive Date: 20120131
  Receipt Date: 20120127
  Transmission Date: 20120608
  Serious: No
  Sender: FDA-Public Use
  Company Number: US-PFIZER INC-2012023527

PATIENT
  Sex: Male
  Weight: 70.295 kg

DRUGS (5)
  1. CHANTIX [Suspect]
     Dosage: UNK
     Route: 048
     Dates: start: 20111201
  2. VICODIN [Concomitant]
     Dosage: UNK
  3. CHANTIX [Suspect]
     Indication: SMOKING CESSATION THERAPY
     Dosage: 0.5 MG, 1X/DAY
     Route: 048
     Dates: start: 20111212, end: 20111201
  4. ALPRAZOLAM [Concomitant]
     Indication: ANXIETY
     Dosage: UNK
  5. CELEXA [Concomitant]
     Dosage: UNK

REACTIONS (5)
  - VOMITING [None]
  - RASH PRURITIC [None]
  - ABNORMAL DREAMS [None]
  - THERAPEUTIC RESPONSE UNEXPECTED [None]
  - NAUSEA [None]
